FAERS Safety Report 4704187-2 (Version None)
Quarter: 2005Q2

REPORT INFORMATION
  Report Type: 
  Country: None (occurrence: None)
  Receive Date: 20050628
  Receipt Date: 20050530
  Transmission Date: 20051028
  Serious: Yes (Other)
  Sender: FDA-Public Use
  Company Number: DEU-2005-0001442

PATIENT
  Age: 91 Year
  Sex: Female
  Weight: 52 kg

DRUGS (10)
  1. HYDROMORPHONE HYDROCHLORIDE [Suspect]
     Indication: PERIOPERATIVE ANALGESIA
     Dosage: SEE TEXT, EPIDURAL
     Route: 008
  2. BUPIVACAINE [Suspect]
     Indication: PERIOPERATIVE ANALGESIA
     Dosage: SEE TEXT, EPIDURAL
     Route: 008
  3. LIDOCAINE/ EPINEPHRINE (EPINEPHRINE, LIDOCAINE) [Concomitant]
  4. RANITIDINE [Concomitant]
  5. RALOXIFENE HCL [Concomitant]
  6. VERAPAMIL [Concomitant]
  7. VITAMIN B12 [Concomitant]
  8. IRON (IRON) [Concomitant]
  9. LATANOPROST [Concomitant]
  10. TIMOLOL MALEATE [Concomitant]

REACTIONS (3)
  - ANAESTHETIC COMPLICATION [None]
  - DIPLEGIA [None]
  - SPINAL CORD COMPRESSION [None]
